FAERS Safety Report 17264174 (Version 1)
Quarter: 2020Q1

REPORT INFORMATION
  Report Type: Spontaneous
  Country: CA (occurrence: CA)
  Receive Date: 20200113
  Receipt Date: 20200113
  Transmission Date: 20200409
  Serious: Yes (Other)
  Sender: FDA-Public Use
  Company Number: CA-SA-2020SA006257

PATIENT
  Sex: Female

DRUGS (10)
  1. REMICADE [Concomitant]
     Active Substance: INFLIXIMAB
     Dosage: UNK UNK, UNK
     Route: 065
  2. LEFLUNOMIDE. [Suspect]
     Active Substance: LEFLUNOMIDE
     Dosage: UNK UNK, UNK
     Route: 065
  3. METHOTREXATE. [Suspect]
     Active Substance: METHOTREXATE
     Dosage: 25 MG, QW
     Route: 065
  4. CIMZIA [Concomitant]
     Active Substance: CERTOLIZUMAB PEGOL
     Dosage: 200 MG, QOW
     Route: 065
  5. SIMPONI [Concomitant]
     Active Substance: GOLIMUMAB
     Dosage: UNK UNK, UNK
     Route: 065
  6. ENBREL [Concomitant]
     Active Substance: ETANERCEPT
     Dosage: UNK UNK, UNK
     Route: 065
  7. HUMIRA [Concomitant]
     Active Substance: ADALIMUMAB
     Dosage: UNK UNK, UNK
     Route: 065
  8. STELARA [Concomitant]
     Active Substance: USTEKINUMAB
     Dosage: UNK UNK, UNK
     Route: 065
  9. CICLOSPORIN [Suspect]
     Active Substance: CYCLOSPORINE
     Dosage: UNK UNK, UNK
     Route: 065
  10. PLAQUENIL [Concomitant]
     Active Substance: HYDROXYCHLOROQUINE SULFATE
     Dosage: UNK UNK, UNK
     Route: 065

REACTIONS (12)
  - Arthritis [Unknown]
  - Neck pain [Unknown]
  - Joint swelling [Unknown]
  - Musculoskeletal stiffness [Unknown]
  - Tenderness [Unknown]
  - Ankylosing spondylitis [Unknown]
  - Arthralgia [Unknown]
  - Discomfort [Unknown]
  - Fatigue [Unknown]
  - Grip strength decreased [Unknown]
  - Pain [Unknown]
  - Back pain [Unknown]
